FAERS Safety Report 10878501 (Version 1)
Quarter: 2015Q1

REPORT INFORMATION
  Report Type: Report from Study
  Country: US (occurrence: US)
  Receive Date: 20150302
  Receipt Date: 20150302
  Transmission Date: 20150721
  Serious: Yes (Other)
  Sender: FDA-Public Use
  Company Number: US-ABBVIE-12P-163-0920232-00

PATIENT
  Age: 48 Year
  Sex: Male
  Weight: 103.06 kg

DRUGS (8)
  1. ANDROGEL [Suspect]
     Active Substance: TESTOSTERONE
     Route: 061
     Dates: start: 201202, end: 201409
  2. ANDROGEL [Suspect]
     Active Substance: TESTOSTERONE
     Indication: HYPOGONADISM
     Route: 061
     Dates: start: 200812, end: 201103
  3. ANDROGEL [Suspect]
     Active Substance: TESTOSTERONE
     Route: 061
     Dates: start: 2009, end: 2011
  4. ANDROGEL [Suspect]
     Active Substance: TESTOSTERONE
     Indication: BLOOD TESTOSTERONE DECREASED
     Dosage: 3 PUMPS PER DAY
     Route: 061
     Dates: start: 201108
  5. UNKNOWN ANTIHYPERTENSIVE MEDICATION [Concomitant]
     Indication: BLOOD PRESSURE
  6. NEXIUM [Concomitant]
     Active Substance: ESOMEPRAZOLE MAGNESIUM
     Indication: GASTROOESOPHAGEAL REFLUX DISEASE
  7. UNKNOWN ANTIHYPERTENSIVE MEDICATION [Concomitant]
     Indication: HYPERTENSION
  8. ANDROGEL [Suspect]
     Active Substance: TESTOSTERONE
     Indication: BLOOD TESTOSTERONE DECREASED
     Dosage: 2.5 PUMP ACTUATIONS OF ANDROGEL PUMP
     Route: 061
     Dates: start: 2007, end: 201202

REACTIONS (8)
  - Somnolence [Not Recovered/Not Resolved]
  - Increased appetite [Recovered/Resolved]
  - Hot flush [Recovered/Resolved]
  - Blood cholesterol increased [Not Recovered/Not Resolved]
  - Anaemia [Recovering/Resolving]
  - Acne [Recovered/Resolved]
  - Blood testosterone decreased [Not Recovered/Not Resolved]
  - Hyperhidrosis [Recovered/Resolved]

NARRATIVE: CASE EVENT DATE: 2007
